FAERS Safety Report 8588047 (Version 2)
Quarter: 2014Q1

REPORT INFORMATION
  Report Type: Spontaneous
  Country: US (occurrence: US)
  Receive Date: 20120531
  Receipt Date: 20140304
  Transmission Date: 20141002
  Serious: Yes (Other)
  Sender: FDA-Public Use
  Company Number: US-ASTRAZENECA-2012SE25154

PATIENT
  Age: 85 Year
  Sex: Female

DRUGS (19)
  1. ATENOLOL [Suspect]
     Route: 048
     Dates: start: 200805, end: 200805
  2. ATENOLOL [Suspect]
     Route: 048
     Dates: start: 20080516
  3. ATENOLOL [Suspect]
     Route: 048
     Dates: start: 20080516
  4. LISINO-HCTZ [Suspect]
     Dosage: 10/12.5 MG
     Route: 048
     Dates: start: 20070824, end: 200805
  5. LISINO-HCTZ [Suspect]
     Dosage: 10/12.5 MG (ZESTORETIC)
     Route: 048
     Dates: start: 20070824, end: 200805
  6. LISINO-HCTZ [Suspect]
     Dosage: 12.5 MG
     Route: 048
     Dates: start: 20070824, end: 200801
  7. TOPROL XL [Suspect]
     Indication: HYPERTENSION
     Route: 048
     Dates: start: 2007
  8. TOPROL XL [Suspect]
     Indication: HYPERTENSION
     Route: 048
  9. TOPROL XL [Suspect]
     Indication: HYPERTENSION
     Dosage: 200 MG 0.5 TABLET AM AND PM FOR APPROXIMATELY 10 YEARS
     Route: 048
  10. TOPROL XL [Suspect]
     Indication: HYPERTENSION
     Route: 048
     Dates: start: 200806
  11. TOPROL XL [Suspect]
     Indication: HYPERTENSION
     Dosage: GENERIC
     Route: 065
  12. METOPROLOL TARTRATE [Suspect]
     Indication: BLOOD PRESSURE
     Route: 048
     Dates: start: 200708, end: 20080824
  13. METOPROLOL TARTRATE [Suspect]
     Indication: BLOOD PRESSURE
     Dosage: GENERIC
     Route: 065
  14. NIFEDIPIN [Suspect]
     Dosage: EXTENDED RELEASE
     Route: 065
     Dates: start: 20080530
  15. COREG [Suspect]
     Dosage: CONTROL RELEASE
     Route: 065
     Dates: start: 200801
  16. SYNTHROID [Concomitant]
  17. HYOPHEN [Concomitant]
  18. OMEPRAZOLE [Concomitant]
  19. CELEBREX [Concomitant]

REACTIONS (21)
  - Eye haemorrhage [Recovered/Resolved]
  - Hypertension [Recovered/Resolved]
  - Ocular hyperaemia [Unknown]
  - Malaise [Unknown]
  - Muscle spasms [Unknown]
  - Tremor [Unknown]
  - Influenza [Unknown]
  - Confusional state [Unknown]
  - Muscular weakness [Unknown]
  - Asthenia [Unknown]
  - Dizziness [Unknown]
  - Constipation [Unknown]
  - Fatigue [Unknown]
  - Abdominal discomfort [Unknown]
  - Fatigue [Unknown]
  - Hypoaesthesia [Unknown]
  - Paraesthesia [Unknown]
  - Activities of daily living impaired [None]
  - Nausea [Unknown]
  - Drug dose omission [Unknown]
  - Drug ineffective [Unknown]
